FAERS Safety Report 11109476 (Version 1)
Quarter: 2015Q2

REPORT INFORMATION
  Report Type: Report from Study
  Country: GB (occurrence: GB)
  Receive Date: 20150513
  Receipt Date: 20150513
  Transmission Date: 20150821
  Serious: Yes (Other)
  Sender: FDA-Public Use
  Company Number: GB-PFIZER INC-2015155097

PATIENT
  Age: 58 Year

DRUGS (1)
  1. PHENYTOIN SODIUM. [Suspect]
     Active Substance: PHENYTOIN SODIUM
     Dosage: UNK

REACTIONS (5)
  - Bradycardia [Recovered/Resolved]
  - Cardiomegaly [Recovered/Resolved]
  - Cardiac failure [Recovered/Resolved]
  - Electrocardiogram T wave inversion [Recovered/Resolved]
  - Ventricular extrasystoles [Recovered/Resolved]
